FAERS Safety Report 19004817 (Version 1)
Quarter: 2021Q1

REPORT INFORMATION
  Report Type: Spontaneous
  Country: CA (occurrence: CA)
  Receive Date: 20210312
  Receipt Date: 20210312
  Transmission Date: 20210420
  Serious: Yes (Life-Threatening, Other)
  Sender: FDA-Public Use
  Company Number: CA-009507513-2103CAN001429

PATIENT
  Age: 11 Month
  Sex: Male
  Weight: 10 kg

DRUGS (12)
  1. ONDANSETRON [Concomitant]
     Active Substance: ONDANSETRON
     Dosage: DOSAGE FORM: NOT SPECIFIED
  2. CHOLECALCIFEROL [Concomitant]
     Active Substance: CHOLECALCIFEROL
     Dosage: DOSAGE FORM: NOT SPECIFIED
  3. LEVOFLOXACIN. [Concomitant]
     Active Substance: LEVOFLOXACIN
     Dosage: DOSAGE FORM: NOT SPECIFIED
  4. RANITIDINE. [Concomitant]
     Active Substance: RANITIDINE
     Dosage: DOSAGE FORM: NOT SPECIFIED
  5. ZOLINZA [Suspect]
     Active Substance: VORINOSTAT
     Indication: ACUTE LYMPHOCYTIC LEUKAEMIA
     Dosage: 80 MILLIGRAM 1 EVER 1 DAYS
     Route: 048
  6. ASPARAGINASE [Suspect]
     Active Substance: ASPARAGINASE
     Indication: ACUTE LYMPHOCYTIC LEUKAEMIA
     Dosage: 1125 UNITS, DOSAGE FORM: POWDER FOR SOLUTION INTRAMUSCULAR
     Route: 042
  7. DEXAMETHASONE. [Concomitant]
     Active Substance: DEXAMETHASONE
     Dosage: DOSAGE FORM: NOT SPECIFIED
     Route: 065
  8. BORTEZOMIB. [Suspect]
     Active Substance: BORTEZOMIB
     Indication: ACUTE LYMPHOCYTIC LEUKAEMIA
     Dosage: ROUTE OF ADMINISTRATION: INTRAVENOUS BOLUS; 0.44 MILLIGRAM
     Route: 042
  9. MITOXANTRONE HYDROCHLORIDE. [Suspect]
     Active Substance: MITOXANTRONE HYDROCHLORIDE
     Indication: ACUTE LYMPHOCYTIC LEUKAEMIA
     Dosage: DOSAGE FORM: SOLUTION INTRAVENOUS; 2.7 MILLIGRAM
     Route: 042
  10. MYCAMINE [Concomitant]
     Active Substance: MICAFUNGIN SODIUM
  11. SULFAMETHOXAZOLE LYSINE (+) TRIMETHOPRIM [Concomitant]
     Dosage: DOSAGE FORM: NOT SPECIFIED
  12. ZINC (UNSPECIFIED) [Concomitant]
     Active Substance: ZINC
     Dosage: DOSAGE FORM: NOT SPECIFIED

REACTIONS (1)
  - Aplastic anaemia [Recovered/Resolved]
